FAERS Safety Report 24884057 (Version 2)
Quarter: 2025Q2

REPORT INFORMATION
  Report Type: Spontaneous
  Country: CA (occurrence: CA)
  Receive Date: 20250124
  Receipt Date: 20250626
  Transmission Date: 20250717
  Serious: Yes (Death, Other)
  Sender: HLS THERAPEUTICS
  Company Number: CA-HLS-202500193

PATIENT
  Age: 82 Year
  Sex: Female

DRUGS (1)
  1. CLOZAPINE [Suspect]
     Active Substance: CLOZAPINE
     Indication: Product used for unknown indication
     Route: 065

REACTIONS (1)
  - Death [Fatal]
